FAERS Safety Report 6733397-8 (Version None)
Quarter: 2010Q2

REPORT INFORMATION
  Report Type: 
  Country: None (occurrence: None)
  Receive Date: 20100520
  Receipt Date: 20100512
  Transmission Date: 20101027
  Serious: Yes (Other)
  Sender: FDA-Public Use
  Company Number: BR-BAYER-201014554LA

PATIENT
  Age: 30 Year
  Sex: Female
  Weight: 93 kg

DRUGS (1)
  1. YASMIN [Suspect]
     Indication: ORAL CONTRACEPTION
     Route: 048
     Dates: start: 20100501

REACTIONS (2)
  - OVARIAN CYST [None]
  - OVARIAN ENLARGEMENT [None]
